FAERS Safety Report 12996016 (Version 4)
Quarter: 2019Q1

REPORT INFORMATION
  Report Type: Spontaneous
  Country: FR (occurrence: FR)
  Receive Date: 20161202
  Receipt Date: 20190315
  Transmission Date: 20190417
  Serious: Yes (Hospitalization, Other)
  Sender: FDA-Public Use
  Company Number: FR-ABBVIE-16P-056-1577380-00

PATIENT
  Sex: Female

DRUGS (2)
  1. SPECIAFOLDINE [Concomitant]
     Active Substance: FOLIC ACID
     Indication: PRODUCT USED FOR UNKNOWN INDICATION
     Route: 065
  2. DEPAKINE CHRONO [Suspect]
     Active Substance: VALPROATE SODIUM
     Indication: PRODUCT USED FOR UNKNOWN INDICATION
     Dosage: 3 DF, QD
     Route: 065

REACTIONS (7)
  - Respiratory distress [Unknown]
  - Premature labour [Unknown]
  - Pulmonary embolism [Unknown]
  - Bronchopneumopathy [Unknown]
  - Exposure during pregnancy [Unknown]
  - Live birth [Unknown]
  - Twin pregnancy [Unknown]

NARRATIVE: CASE EVENT DATE: 20050924
